FAERS Safety Report 7356790-1 (Version None)
Quarter: 2011Q1

REPORT INFORMATION
  Report Type: 
  Country: None (occurrence: None)
  Receive Date: 20110316
  Receipt Date: 20110308
  Transmission Date: 20110831
  Serious: Yes (Disabling)
  Sender: FDA-Public Use
  Company Number: GB-BRISTOL-MYERS SQUIBB COMPANY-15593353

PATIENT
  Age: 80 Year
  Sex: Male
  Weight: 68 kg

DRUGS (6)
  1. ONGLYZA [Suspect]
     Indication: TYPE 2 DIABETES MELLITUS
     Dosage: CUMULATIVE DOSE:20.03UNDEFINED
     Route: 048
     Dates: start: 20101202, end: 20110131
  2. ATENOLOL [Concomitant]
     Indication: HYPERTENSION
     Route: 048
  3. TRAMADOL HCL [Concomitant]
     Indication: ARTHRALGIA
     Route: 048
  4. ADALAT [Concomitant]
     Indication: HYPERTENSION
     Route: 048
  5. GLICLAZIDE [Concomitant]
     Indication: DIABETES MELLITUS
     Route: 048
  6. SIMVASTATIN [Concomitant]
     Indication: HYPERCHOLESTEROLAEMIA
     Dosage: STARTED 4 YEARS AGO
     Route: 048

REACTIONS (4)
  - ORAL MUCOSAL EXFOLIATION [None]
  - LOOSE TOOTH [None]
  - GINGIVAL PAIN [None]
  - SENSITIVITY OF TEETH [None]
